FAERS Safety Report 4408764-8 (Version None)
Quarter: 2004Q3

REPORT INFORMATION
  Report Type: 
  Country: None (occurrence: None)
  Receive Date: 20040727
  Receipt Date: 20040427
  Transmission Date: 20050211
  Serious: Yes (Other)
  Sender: FDA-Public Use
  Company Number: US-AMGEN-US075985

PATIENT
  Sex: Female

DRUGS (3)
  1. ENBREL [Suspect]
     Indication: RHEUMATOID ARTHRITIS
     Route: 058
     Dates: start: 20030901, end: 20031230
  2. METHOTREXATE [Concomitant]
  3. ISONIAZID [Concomitant]
     Route: 048
     Dates: start: 20030514, end: 20031201

REACTIONS (3)
  - CONDITION AGGRAVATED [None]
  - IMMUNOSUPPRESSION [None]
  - PULMONARY GRANULOMA [None]
